FAERS Safety Report 7560657-3 (Version None)
Quarter: 2011Q2

REPORT INFORMATION
  Report Type: 
  Country: None (occurrence: None)
  Receive Date: 20110621
  Receipt Date: 20110615
  Transmission Date: 20111010
  Serious: No
  Sender: FDA-Public Use
  Company Number: US-PFIZER INC-2011131723

PATIENT
  Sex: Female

DRUGS (5)
  1. AMITRIPTYLINE [Concomitant]
     Indication: DEPRESSION
     Dosage: 25 MG, 2X/DAY
     Dates: start: 19860101
  2. ALPRAZOLAM [Suspect]
  3. ALPRAZOLAM [Suspect]
     Indication: ANXIETY
     Dosage: DAILY
     Route: 048
     Dates: start: 20110614
  4. ALPRAZOLAM [Suspect]
     Indication: PANIC ATTACK
  5. ALPRAZOLAM [Suspect]
     Dosage: 1 MG, 2X/DAY
     Route: 048
     Dates: start: 20060329

REACTIONS (2)
  - ANXIETY [None]
  - STRESS [None]
